FAERS Safety Report 7753560-7 (Version None)
Quarter: 2011Q3

REPORT INFORMATION
  Report Type: 
  Country: None (occurrence: None)
  Receive Date: 20110915
  Receipt Date: 20110908
  Transmission Date: 20111222
  Serious: Yes (Hospitalization)
  Sender: FDA-Public Use
  Company Number: US-GLAXOSMITHKLINE-A0782976A

PATIENT
  Age: 45 Year
  Sex: Female
  Weight: 115 kg

DRUGS (3)
  1. AVANDIA [Suspect]
     Indication: DIABETES MELLITUS
     Dosage: 4MG TWICE PER DAY
     Route: 048
     Dates: start: 20010101, end: 20070801
  2. INSULIN [Concomitant]
  3. PREDNISONE [Concomitant]

REACTIONS (4)
  - MYOCARDIAL INFARCTION [None]
  - HYPERTENSION [None]
  - HYPERCHOLESTEROLAEMIA [None]
  - CORONARY ARTERY DISEASE [None]
